FAERS Safety Report 7398200-4 (Version None)
Quarter: 2011Q2

REPORT INFORMATION
  Report Type: 
  Country: None (occurrence: None)
  Receive Date: 20110406
  Receipt Date: 20110331
  Transmission Date: 20111010
  Serious: Yes (Life-Threatening, Other)
  Sender: FDA-Public Use
  Company Number: US-B.I. PHARMACEUTICALS,INC./RIDGEFIELD-2011-DE-02123GD

PATIENT
  Age: 48 Year
  Sex: Female

DRUGS (2)
  1. PROPRANOLOL [Suspect]
     Route: 048
  2. CLONIDINE [Suspect]
     Route: 048

REACTIONS (5)
  - OVERDOSE [None]
  - ACIDOSIS [None]
  - BLOOD PRESSURE DECREASED [None]
  - DEPRESSED LEVEL OF CONSCIOUSNESS [None]
  - HEART RATE DECREASED [None]
